FAERS Safety Report 18259637 (Version 2)
Quarter: 2020Q3

REPORT INFORMATION
  Report Type: Spontaneous
  Country: US (occurrence: US)
  Receive Date: 20200912
  Receipt Date: 20200919
  Transmission Date: 20201103
  Serious: No
  Sender: FDA-Public Use
  Company Number: US-ELI_LILLY_AND_COMPANY-US202009005309

PATIENT
  Sex: Female

DRUGS (1)
  1. ZYPREXA [Suspect]
     Active Substance: OLANZAPINE
     Indication: MIGRAINE
     Dosage: 2.5 MG, UNKNOWN
     Route: 065
     Dates: start: 2012

REACTIONS (4)
  - Dyskinesia [Unknown]
  - Tremor [Unknown]
  - Cognitive disorder [Unknown]
  - Off label use [Unknown]
